FAERS Safety Report 22860336 (Version 3)
Quarter: 2024Q3

REPORT INFORMATION
  Report Type: Spontaneous
  Country: JP (occurrence: JP)
  Receive Date: 20230824
  Receipt Date: 20240723
  Transmission Date: 20241016
  Serious: Yes (Death, Hospitalization, Other)
  Sender: OTSUKA
  Company Number: JP-OTSUKA-2023_022287

PATIENT
  Age: 54 Year
  Sex: Female
  Weight: 86 kg

DRUGS (1)
  1. SAMSCA [Suspect]
     Active Substance: TOLVAPTAN
     Indication: Congenital cystic kidney disease
     Dosage: 60 MG/DAY
     Route: 048

REACTIONS (4)
  - Sudden death [Fatal]
  - Ascites [Unknown]
  - Weight increased [Recovering/Resolving]
  - Polydipsia [Unknown]
